FAERS Safety Report 12446388 (Version 1)
Quarter: 2016Q2

REPORT INFORMATION
  Report Type: Spontaneous
  Country: US (occurrence: None)
  Receive Date: 20160607
  Receipt Date: 20160607
  Transmission Date: 20160815
  Serious: Yes (Disabling, Other)
  Sender: FDA-Public Use
  Company Number: None

PATIENT
  Age: 43 Year
  Sex: Female
  Weight: 57.15 kg

DRUGS (1)
  1. CIPROFLOXACIN. [Suspect]
     Active Substance: CIPROFLOXACIN
     Indication: URINARY TRACT INFECTION
     Route: 048
     Dates: start: 20160415, end: 20160418

REACTIONS (6)
  - Anxiety [None]
  - Palpitations [None]
  - Back pain [None]
  - Chest pain [None]
  - Insomnia [None]
  - Angina pectoris [None]

NARRATIVE: CASE EVENT DATE: 20160416
